FAERS Safety Report 22245197 (Version 1)
Quarter: 2023Q2

REPORT INFORMATION
  Report Type: Spontaneous
  Country: None (occurrence: PL)
  Receive Date: 20230424
  Receipt Date: 20230424
  Transmission Date: 20230722
  Serious: Yes (Hospitalization, Other)
  Sender: FDA-Public Use
  Company Number: PL-Therakind Limited-2140706

PATIENT
  Age: 48 Year
  Sex: Female

DRUGS (9)
  1. METHOTREXATE [Suspect]
     Active Substance: METHOTREXATE
     Indication: Follicular lymphoma stage IV
  2. IFOSFAMIDE [Suspect]
     Active Substance: IFOSFAMIDE
  3. PREDNISONE [Suspect]
     Active Substance: PREDNISONE
  4. CYTARABINE [Suspect]
     Active Substance: CYTARABINE
  5. RITUXIMAB [Suspect]
     Active Substance: RITUXIMAB
  6. THIOTEPA [Suspect]
     Active Substance: THIOTEPA
  7. CYCLOPHOSPHAMIDE [Suspect]
     Active Substance: CYCLOPHOSPHAMIDE
  8. DOXORUBICIN HYDROCHLORIDE [Suspect]
     Active Substance: DOXORUBICIN HYDROCHLORIDE
  9. VINCRISTINE SULFATE [Suspect]
     Active Substance: VINCRISTINE SULFATE

REACTIONS (4)
  - Neuropathy peripheral [Unknown]
  - COVID-19 [Unknown]
  - Drug ineffective [Unknown]
  - Product use in unapproved indication [Unknown]
